FAERS Safety Report 5735372-9 (Version None)
Quarter: 2008Q2

REPORT INFORMATION
  Report Type: 
  Country: None (occurrence: None)
  Receive Date: 20080505
  Receipt Date: 20080123
  Transmission Date: 20081010
  Serious: Yes (Other)
  Sender: FDA-Public Use
  Company Number: PHEH2007US15801

PATIENT
  Sex: Female
  Weight: 81.6 kg

DRUGS (1)
  1. EXELON [Suspect]
     Indication: DEMENTIA ALZHEIMER'S TYPE
     Dosage: 4.6 MG/DAY, QD, TRANSDERMAL
     Route: 062

REACTIONS (1)
  - BRADYCARDIA [None]
